FAERS Safety Report 4925101-0 (Version None)
Quarter: 2006Q1

REPORT INFORMATION
  Report Type: 
  Country: None (occurrence: None)
  Receive Date: 20060228
  Receipt Date: 20060117
  Transmission Date: 20060701
  Serious: No
  Sender: FDA-Public Use
  Company Number: US-GLAXOSMITHKLINE-A0589647A

PATIENT
  Age: 41 Year
  Sex: Female
  Weight: 77.3 kg

DRUGS (5)
  1. EPZICOM [Suspect]
     Indication: HIV INFECTION
     Dosage: 1TAB PER DAY
     Route: 048
     Dates: start: 20060111, end: 20060113
  2. KALETRA [Concomitant]
  3. WELLBUTRIN XL [Concomitant]
  4. NEXIUM [Concomitant]
  5. XANAX [Concomitant]

REACTIONS (1)
  - RASH [None]
